FAERS Safety Report 8874160 (Version 3)
Quarter: 2015Q2

REPORT INFORMATION
  Report Type: Report from Study
  Country: US (occurrence: US)
  Receive Date: 20121023
  Receipt Date: 20150413
  Transmission Date: 20150821
  Serious: Yes (Death, Other)
  Sender: FDA-Public Use
  Company Number: US-ROCHE-1130091

PATIENT
  Sex: Female
  Weight: 79.9 kg

DRUGS (12)
  1. RITUXAN [Suspect]
     Active Substance: RITUXIMAB
     Indication: DIFFUSE LARGE B-CELL LYMPHOMA
  2. DEXAMETHASONE. [Concomitant]
     Active Substance: DEXAMETHASONE
     Dosage: RECEIVED ON 13/MAR/2006 (CYCLE 3, DAY 1), 03/APR/2006 (CYCLE 4, DAY 1), 24/APR/2006 (CYCLE 5, DAY 1)
     Route: 065
  3. NEULASTA [Concomitant]
     Active Substance: PEGFILGRASTIM
     Dosage: RECEIVED ON 27/FEB/2006, 14/MAR/2006 (CYCLE 3, DAY 2), 04/APR/2006 (CYCLE 4, DAY 2)
     Route: 065
  4. RITUXAN [Suspect]
     Active Substance: RITUXIMAB
     Indication: NON-HODGKIN^S LYMPHOMA
     Dosage: RECEIVED ON 13/MAR/2006 (CYCLE 3, DAY 1), 03/APR/2006 (CYCLE 4, DAY 1), 24/APR/2006 (CYCLE 5, DAY 1)
     Route: 042
     Dates: start: 20060126, end: 20060515
  5. DIPHENHYDRAMINE HCL [Concomitant]
     Active Substance: DIPHENHYDRAMINE HYDROCHLORIDE
     Dosage: RECEIVED ON 03/APR/2006 (CYCLE 4, DAY 1), 24/APR/2006 (CYCLE 5, DAY 1), 15/MAY/2006 (CYCLE 6, DAY 1)
     Route: 065
  6. CYCLOPHOSPHAMIDE. [Concomitant]
     Active Substance: CYCLOPHOSPHAMIDE
     Dosage: RECEIVED ON 13/MAR/2006 (CYCLE 3, DAY 1), 03/APR/2006 (CYCLE 4, DAY 1), 24/APR/2006 (CYCLE 5, DAY 1)
     Route: 065
  7. DOXORUBICIN HCL [Concomitant]
     Active Substance: DOXORUBICIN HYDROCHLORIDE
     Dosage: RECEIVED ON 13/MAR/2006 (CYCLE 3, DAY 1), 03/APR/2006 (CYCLE 4, DAY 1), 24/APR/2006 (CYCLE 5, DAY 1)
     Route: 065
  8. ACETAMINOPHEN. [Concomitant]
     Active Substance: ACETAMINOPHEN
     Dosage: RECEIVED ON 03/APR/2006 (CYCLE 4, DAY 1), 24/APR/2006 (CYCLE 5, DAY 1), 15/MAY/2006 (CYCLE 6, DAY 1)
     Route: 065
  9. PREDNISONE. [Concomitant]
     Active Substance: PREDNISONE
  10. RITUXAN [Suspect]
     Active Substance: RITUXIMAB
     Indication: LYMPHOMA
  11. VINCRISTINE SULFATE. [Concomitant]
     Active Substance: VINCRISTINE SULFATE
     Dosage: RECEIVED ON 13/MAR/2006 (CYCLE 3, DAY 1),  03/APR/2006 (CYCLE 4, DAY 1), 24/APR/2006 (CYCLE 5, DAY 1
     Route: 065
  12. ALOXI [Concomitant]
     Active Substance: PALONOSETRON HYDROCHLORIDE
     Dosage: RECEIVED ON 13/MAR/2006 (CYCLE 3, DAY 1), 03/APR/2006 (CYCLE 4, DAY 1), 24/APR/2006 (CYCLE 5, DAY 1)
     Route: 065

REACTIONS (4)
  - Fatigue [Unknown]
  - Neutropenia [Unknown]
  - Death [Fatal]
  - Sepsis [Unknown]
